FAERS Safety Report 20932462 (Version 2)
Quarter: 2022Q2

REPORT INFORMATION
  Report Type: Spontaneous
  Country: CA (occurrence: CA)
  Receive Date: 20220608
  Receipt Date: 20220613
  Transmission Date: 20220720
  Serious: No
  Sender: FDA-Public Use
  Company Number: CA-THERATECHNOLOGIES INC.-2022-THE-TES-000135

PATIENT
  Age: 67 Year
  Sex: Male
  Weight: 88.435 kg

DRUGS (1)
  1. EGRIFTA [Suspect]
     Active Substance: TESAMORELIN ACETATE
     Indication: Lipodystrophy acquired
     Dosage: 2 MG, QD
     Route: 058
     Dates: start: 20160920

REACTIONS (2)
  - Injection site discomfort [Unknown]
  - Intentional dose omission [Unknown]

NARRATIVE: CASE EVENT DATE: 20220522
